FAERS Safety Report 7190237-3 (Version None)
Quarter: 2010Q4

REPORT INFORMATION
  Report Type: 
  Country: None (occurrence: None)
  Receive Date: 20101223
  Receipt Date: 20101209
  Transmission Date: 20110411
  Serious: Yes (Hospitalization, Other)
  Sender: FDA-Public Use
  Company Number: PHFR2010GB05438

PATIENT
  Sex: Male

DRUGS (4)
  1. CLOZARIL [Suspect]
     Indication: SCHIZOPHRENIA
     Dosage: UNK
     Route: 048
     Dates: start: 20100927, end: 20101117
  2. QUETIAPINE [Concomitant]
     Dosage: UNK
  3. DIAZEPAM [Concomitant]
     Dosage: UNK
  4. PROCYCLIDINE HYDROCHLORIDE 2MG TAB [Concomitant]
     Dosage: UNK

REACTIONS (6)
  - AGRANULOCYTOSIS [None]
  - BODY TEMPERATURE INCREASED [None]
  - DECUBITUS ULCER [None]
  - NEUTROPHIL COUNT DECREASED [None]
  - PLATELET COUNT DECREASED [None]
  - WHITE BLOOD CELL COUNT DECREASED [None]
